FAERS Safety Report 9461712 (Version 1)
Quarter: 2013Q3

REPORT INFORMATION
  Report Type: Spontaneous
  Country: US (occurrence: None)
  Receive Date: 20130815
  Receipt Date: 20130815
  Transmission Date: 20140515
  Serious: Yes (Disabling)
  Sender: FDA-Public Use
  Company Number: None

PATIENT
  Age: 65 Year
  Sex: Female
  Weight: 49.9 kg

DRUGS (8)
  1. PROLIA [Suspect]
     Indication: OSTEOPOROSIS
     Dates: start: 20100719
  2. PLAQUENIL [Concomitant]
  3. PREDNISONE [Concomitant]
  4. NEXIUM [Concomitant]
  5. AZORE [Concomitant]
  6. FLONASE [Concomitant]
  7. MULTI VITAMIN [Concomitant]
  8. CITRACAL +D3 [Concomitant]

REACTIONS (3)
  - Muscular weakness [None]
  - Fall [None]
  - Wrist fracture [None]
